FAERS Safety Report 13961260 (Version 2)
Quarter: 2019Q1

REPORT INFORMATION
  Report Type: Report from Study
  Country: US (occurrence: US)
  Receive Date: 20170912
  Receipt Date: 20190311
  Transmission Date: 20190417
  Serious: Yes (Hospitalization, Disabling)
  Sender: FDA-Public Use
  Company Number: US-BAYER-2017-168908

PATIENT
  Sex: Male

DRUGS (1)
  1. GADOLINIUM IN UNSPECIFIED DRUG [Suspect]
     Active Substance: GADOLINIUM
     Dosage: UNK, ONCE

REACTIONS (5)
  - Fibromyalgia [None]
  - Pain [None]
  - Feeling abnormal [None]
  - Contrast media deposition [None]
  - Disability [None]
